FAERS Safety Report 11614184 (Version 3)
Quarter: 2016Q1

REPORT INFORMATION
  Report Type: Report from Study
  Country: CA (occurrence: CA)
  Receive Date: 20151008
  Receipt Date: 20160309
  Transmission Date: 20160525
  Serious: No
  Sender: FDA-Public Use
  Company Number: PHHY2014CA072346

PATIENT
  Age: 61 Year
  Sex: Female

DRUGS (7)
  1. TASIGNA [Suspect]
     Active Substance: NILOTINIB
     Indication: CHRONIC MYELOID LEUKAEMIA
     Dosage: 150 MG, BID
     Route: 048
     Dates: start: 20140603, end: 20150205
  2. PROLIA [Concomitant]
     Active Substance: DENOSUMAB
     Indication: OSTEOPOROSIS
     Dosage: UNK
     Route: 065
  3. LUGOL [Concomitant]
     Active Substance: IODINE\POTASSIUM IODIDE
     Indication: ADRENAL DISORDER
  4. TASIGNA [Suspect]
     Active Substance: NILOTINIB
     Dosage: 150 MG, QD
     Route: 048
     Dates: start: 20150428
  5. SPRYCEL [Concomitant]
     Active Substance: DASATINIB
     Indication: PRODUCT USED FOR UNKNOWN INDICATION
     Dosage: UNK
     Route: 065
     Dates: end: 201504
  6. LUGOL [Concomitant]
     Active Substance: IODINE\POTASSIUM IODIDE
     Indication: THYROID DISORDER
     Dosage: UNK
     Route: 065
  7. MODAFINIL. [Concomitant]
     Active Substance: MODAFINIL
     Indication: PRODUCT USED FOR UNKNOWN INDICATION
     Dosage: 100 MG, BID
     Route: 065

REACTIONS (30)
  - Acidosis [Unknown]
  - Anal fissure [Not Recovered/Not Resolved]
  - Malaise [Recovering/Resolving]
  - Burning sensation [Not Recovered/Not Resolved]
  - Muscle spasms [Unknown]
  - Red cell distribution width increased [Unknown]
  - Pain in extremity [Recovering/Resolving]
  - Acne [Unknown]
  - Rash [Not Recovered/Not Resolved]
  - Blister [Unknown]
  - Hypoaesthesia [Recovering/Resolving]
  - Feeling jittery [Unknown]
  - Blister rupture [Unknown]
  - Lung disorder [Unknown]
  - Feeling abnormal [Unknown]
  - Inflammation [Unknown]
  - Anorectal discomfort [Not Recovered/Not Resolved]
  - Dyspnoea [Unknown]
  - Proctalgia [Not Recovered/Not Resolved]
  - Neuralgia [Not Recovered/Not Resolved]
  - Gastroenteritis viral [Unknown]
  - Throat irritation [Unknown]
  - Fatigue [Unknown]
  - Gait disturbance [Recovering/Resolving]
  - Oral discomfort [Unknown]
  - Memory impairment [Unknown]
  - Erythema [Unknown]
  - Blood alkaline phosphatase increased [Unknown]
  - Platelet count decreased [Unknown]
  - Skin hypertrophy [Unknown]

NARRATIVE: CASE EVENT DATE: 20150117
